FAERS Safety Report 5120337-0 (Version None)
Quarter: 2006Q4

REPORT INFORMATION
  Report Type: 
  Country: None (occurrence: None)
  Receive Date: 20061004
  Receipt Date: 20060927
  Transmission Date: 20070319
  Serious: Yes (Hospitalization)
  Sender: FDA-Public Use
  Company Number: CA-AVENTIS-200620067GDDC

PATIENT
  Age: 40 Year
  Sex: Female
  Weight: 79.3 kg

DRUGS (8)
  1. DOCETAXEL [Suspect]
     Indication: BREAST CANCER METASTATIC
     Route: 042
     Dates: start: 20051011, end: 20051011
  2. DOCETAXEL [Suspect]
     Route: 042
     Dates: start: 20051101, end: 20060629
  3. SERAX                              /00040901/ [Concomitant]
     Route: 048
     Dates: start: 20050701
  4. SYNTHROID [Concomitant]
     Route: 048
     Dates: start: 19970113
  5. DILAUDID                           /00080902/ [Concomitant]
     Route: 048
     Dates: start: 20051026
  6. MAGIC MOUTHWASH [Concomitant]
     Route: 048
     Dates: start: 20051011, end: 20060727
  7. MOTRIN [Concomitant]
     Route: 048
     Dates: start: 20060701, end: 20060727
  8. LOPERAMIDE [Concomitant]
     Route: 048
     Dates: start: 20051208

REACTIONS (4)
  - BACK PAIN [None]
  - CAPILLARY LEAK SYNDROME [None]
  - DYSPNOEA [None]
  - PLEURAL EFFUSION [None]
